FAERS Safety Report 19892900 (Version 1)
Quarter: 2021Q3

REPORT INFORMATION
  Report Type: Spontaneous
  Country: PL (occurrence: PL)
  Receive Date: 20210928
  Receipt Date: 20210928
  Transmission Date: 20211014
  Serious: Yes (Other)
  Sender: FDA-Public Use
  Company Number: PL-PFIZER INC-202101215992

PATIENT
  Age: 40 Year
  Sex: Male
  Weight: 95 kg

DRUGS (1)
  1. SULFASALAZINE. [Suspect]
     Active Substance: SULFASALAZINE
     Indication: INTESTINAL ULCER
     Dosage: 500 MG, 4X/DAY
     Route: 048
     Dates: start: 20180702, end: 20180716

REACTIONS (6)
  - Feeling drunk [Unknown]
  - Hypopnoea [Unknown]
  - Ocular hyperaemia [Unknown]
  - Off label use [Unknown]
  - Dizziness [Unknown]
  - Dyspnoea [Unknown]

NARRATIVE: CASE EVENT DATE: 20180702
